FAERS Safety Report 24891018 (Version 1)
Quarter: 2025Q1

REPORT INFORMATION
  Report Type: Spontaneous
  Country: US (occurrence: US)
  Receive Date: 20250127
  Receipt Date: 20250127
  Transmission Date: 20250409
  Serious: No
  Sender: SANOFI AVENTIS
  Company Number: US-SA-2025SA021731

PATIENT
  Age: 2 Year
  Sex: Female
  Weight: 32 kg

DRUGS (1)
  1. DUPIXENT [Suspect]
     Active Substance: DUPILUMAB
     Indication: Dermatitis atopic
     Dosage: 300 MG, Q4W
     Route: 058

REACTIONS (5)
  - Drug hypersensitivity [Unknown]
  - Arthralgia [Unknown]
  - Swelling of eyelid [Unknown]
  - Diarrhoea [Recovered/Resolved]
  - Incorrect dose administered [Unknown]
